FAERS Safety Report 13417235 (Version 1)
Quarter: 2017Q2

REPORT INFORMATION
  Report Type: Spontaneous
  Country: US (occurrence: US)
  Receive Date: 20170406
  Receipt Date: 20170406
  Transmission Date: 20170830
  Serious: No
  Sender: FDA-Public Use
  Company Number: US-ARBOR PHARMACEUTICALS, LLC-US-2016ARB002388

PATIENT

DRUGS (2)
  1. SKLICE [Suspect]
     Active Substance: IVERMECTIN
     Indication: LICE INFESTATION
     Dosage: UNK
     Route: 061
     Dates: start: 201611, end: 201611
  2. SKLICE [Suspect]
     Active Substance: IVERMECTIN
     Dosage: UNK
     Dates: start: 20161201, end: 20161201

REACTIONS (4)
  - Viral upper respiratory tract infection [Unknown]
  - Pruritus [Recovered/Resolved]
  - Drug ineffective [Unknown]
  - Hair disorder [Unknown]

NARRATIVE: CASE EVENT DATE: 2016
